FAERS Safety Report 15921552 (Version 2)
Quarter: 2019Q1

REPORT INFORMATION
  Report Type: Spontaneous
  Country: US (occurrence: US)
  Receive Date: 20190205
  Receipt Date: 20190219
  Transmission Date: 20190417
  Serious: No
  Sender: FDA-Public Use
  Company Number: US-ALLERGAN-1801758US

PATIENT
  Sex: Female

DRUGS (1)
  1. BOTOX COSMETIC [Suspect]
     Active Substance: ONABOTULINUMTOXINA
     Indication: SKIN WRINKLING
     Dosage: UNK, SINGLE
     Route: 030
     Dates: start: 20171213, end: 20171213

REACTIONS (18)
  - Hypoaesthesia [Unknown]
  - Pain in jaw [Not Recovered/Not Resolved]
  - Tension headache [Not Recovered/Not Resolved]
  - Skin wrinkling [Not Recovered/Not Resolved]
  - Ocular discomfort [Unknown]
  - Joint stiffness [Not Recovered/Not Resolved]
  - Product administered at inappropriate site [Unknown]
  - Facial asymmetry [Not Recovered/Not Resolved]
  - Product preparation error [Unknown]
  - Contusion [Unknown]
  - Dizziness [Not Recovered/Not Resolved]
  - Drug ineffective [Unknown]
  - Injection site pain [Not Recovered/Not Resolved]
  - Brow ptosis [Unknown]
  - Speech disorder [Unknown]
  - Injection site irritation [Unknown]
  - Confusional state [Unknown]
  - Facial paralysis [Not Recovered/Not Resolved]

NARRATIVE: CASE EVENT DATE: 20171213
